FAERS Safety Report 24076646 (Version 1)
Quarter: 2024Q3

REPORT INFORMATION
  Report Type: Spontaneous
  Country: US (occurrence: None)
  Receive Date: 20240711
  Receipt Date: 20240711
  Transmission Date: 20241016
  Serious: No
  Sender: ENCUBE ETHICALS
  Company Number: US-Encube-000802

PATIENT
  Age: 16 Year
  Sex: Female

DRUGS (2)
  1. CLINDAMYCIN AND BENZOYL PEROXIDE [Suspect]
     Active Substance: BENZOYL PEROXIDE\CLINDAMYCIN PHOSPHATE
     Indication: Acne
     Dosage: 1.2%/5%, USED ONCE LAST NIGHT
     Dates: start: 20240626
  2. DEXTROAMPHETAMINE [Concomitant]
     Active Substance: DEXTROAMPHETAMINE
     Indication: Attention deficit hyperactivity disorder

REACTIONS (2)
  - Erythema [Unknown]
  - Swelling face [Unknown]

NARRATIVE: CASE EVENT DATE: 20240627
